FAERS Safety Report 8724768 (Version 2)
Quarter: 2012Q4

REPORT INFORMATION
  Report Type: 
  Country: US (occurrence: US)
  Receive Date: 20120815
  Receipt Date: 20120912
  Transmission Date: 20130627
  Serious: Yes (Hospitalization, Other)
  Sender: FDA-Public Use
  Company Number: US-ELI_LILLY_AND_COMPANY-US201208003592

PATIENT
  Age: 47 Year
  Sex: Male
  Weight: 70 kg

DRUGS (11)
  1. HUMALOG LISPRO [Suspect]
     Indication: DIABETES MELLITUS
     Dosage: 20 u, qd
  2. LANTUS [Concomitant]
     Indication: DIABETES MELLITUS
     Dosage: UNK, unknown
  3. ASA [Concomitant]
  4. FLOMAX [Concomitant]
  5. LOPRESSOR [Concomitant]
  6. PLAVIX [Concomitant]
  7. PREDNISONE [Concomitant]
  8. PRAVASTATIN [Concomitant]
  9. PRILOSEC [Concomitant]
  10. PROGRAF [Concomitant]
  11. VITAMIN D [Concomitant]

REACTIONS (3)
  - Renal failure [Recovered/Resolved]
  - Medication error [Unknown]
  - Product quality issue [None]
